FAERS Safety Report 6981786-9 (Version None)
Quarter: 2010Q3

REPORT INFORMATION
  Report Type: 
  Country: None (occurrence: None)
  Receive Date: 20100914
  Receipt Date: 20091013
  Transmission Date: 20110219
  Serious: Yes (Other)
  Sender: FDA-Public Use
  Company Number: US-PFIZER INC-2009259321

PATIENT
  Sex: Female
  Weight: 69.841 kg

DRUGS (8)
  1. LYRICA [Suspect]
     Dosage: UNK
     Dates: start: 20090420
  2. TRAMADOL HYDROCHLORIDE [Suspect]
     Indication: PAIN
     Dosage: 100 MG, EVERY 6 HOURS AS NEEDED
     Dates: start: 20090430, end: 20090811
  3. SPIRIVA [Concomitant]
     Indication: BRONCHITIS
  4. ADVAIR DISKUS 100/50 [Concomitant]
     Indication: BRONCHITIS
  5. THYROID [Concomitant]
     Indication: HYPOTHYROIDISM
  6. PREMARIN [Concomitant]
  7. DARVON [Concomitant]
  8. DARVOCET [Concomitant]

REACTIONS (1)
  - PANCYTOPENIA [None]
